FAERS Safety Report 6650749-5 (Version None)
Quarter: 2010Q1

REPORT INFORMATION
  Report Type: 
  Country: None (occurrence: None)
  Receive Date: 20100325
  Receipt Date: 20100305
  Transmission Date: 20100710
  Serious: No
  Sender: FDA-Public Use
  Company Number: US-BIOGENIDEC-2009BI041970

PATIENT
  Age: 28 Year
  Sex: Female

DRUGS (1)
  1. TYSABRI [Suspect]
     Indication: MULTIPLE SCLEROSIS
     Route: 042
     Dates: start: 20090701

REACTIONS (15)
  - BACTERIAL INFECTION [None]
  - BRONCHITIS [None]
  - CONJUNCTIVITIS INFECTIVE [None]
  - COUGH [None]
  - HYPERSENSITIVITY [None]
  - LYMPH NODE PAIN [None]
  - LYMPHADENOPATHY [None]
  - MYALGIA [None]
  - NASOPHARYNGITIS [None]
  - OROPHARYNGEAL PAIN [None]
  - PHARYNGITIS BACTERIAL [None]
  - PYREXIA [None]
  - SINUS DISORDER [None]
  - TONSILLITIS [None]
  - VIRAL INFECTION [None]
